FAERS Safety Report 19777046 (Version 2)
Quarter: 2021Q3

REPORT INFORMATION
  Report Type: Spontaneous
  Country: JP (occurrence: JP)
  Receive Date: 20210902
  Receipt Date: 20210903
  Transmission Date: 20211014
  Serious: No
  Sender: FDA-Public Use
  Company Number: JP-009507513-2108JPN001937J

PATIENT
  Age: 7 Decade
  Sex: Female

DRUGS (1)
  1. TIENAM FOR INTRAVENOUS DRIP INFUSION 0.5G [Suspect]
     Active Substance: CILASTATIN SODIUM\IMIPENEM
     Indication: ANALGESIC THERAPY
     Dosage: 0.5 GRAM/DOSE
     Route: 051

REACTIONS (1)
  - Off label use [Unknown]
